FAERS Safety Report 4979121-0 (Version None)
Quarter: 2006Q2

REPORT INFORMATION
  Report Type: 
  Country: None (occurrence: None)
  Receive Date: 20060421
  Receipt Date: 20060411
  Transmission Date: 20061013
  Serious: Yes (Death)
  Sender: FDA-Public Use
  Company Number: US-JNJFOC-20040501450

PATIENT
  Sex: Male
  Weight: 63.5 kg

DRUGS (8)
  1. DURAGESIC-100 [Suspect]
     Route: 062
  2. DURAGESIC-100 [Suspect]
     Route: 062
  3. FLUOXETINE [Concomitant]
     Indication: DEPRESSION
     Route: 048
  4. LORTAB [Concomitant]
     Route: 048
  5. LORTAB [Concomitant]
     Indication: BREAKTHROUGH PAIN
     Dosage: 10 MG, UP TO SIX PER DAY, ORAL
     Route: 048
  6. ZETIA [Concomitant]
     Route: 048
  7. RESTORIL [Concomitant]
     Indication: INSOMNIA
     Dosage: AT BEDTIME
  8. AMBIEN [Concomitant]
     Indication: INSOMNIA
     Dosage: AT BEDTIME

REACTIONS (35)
  - ABNORMAL BEHAVIOUR [None]
  - ACCIDENTAL DEATH [None]
  - ALCOHOLISM [None]
  - ANHEDONIA [None]
  - ANXIETY [None]
  - ARTERIOSCLEROSIS CORONARY ARTERY [None]
  - BACTERIAL INFECTION [None]
  - BENIGN PROSTATIC HYPERPLASIA [None]
  - CIRCULATORY COLLAPSE [None]
  - COLITIS [None]
  - DEPRESSION [None]
  - DRUG TOXICITY [None]
  - DYSARTHRIA [None]
  - EXCORIATION [None]
  - FALL [None]
  - FLUSHING [None]
  - GLOMERULOSCLEROSIS [None]
  - HAEMANGIOMA OF LIVER [None]
  - HEADACHE [None]
  - HEPATIC STEATOSIS [None]
  - INSOMNIA [None]
  - LABILE HYPERTENSION [None]
  - LETHARGY [None]
  - LIPOMA [None]
  - LOSS OF CONSCIOUSNESS [None]
  - MACROCYTOSIS [None]
  - NECK PAIN [None]
  - OVERDOSE [None]
  - PHARYNGOLARYNGEAL PAIN [None]
  - POLYSUBSTANCE DEPENDENCE [None]
  - SNEEZING [None]
  - ULCER [None]
  - VASCULAR CALCIFICATION [None]
  - VENTRICULAR HYPERTROPHY [None]
  - WEIGHT DECREASED [None]
